FAERS Safety Report 6375416-7 (Version None)
Quarter: 2009Q3

REPORT INFORMATION
  Report Type: 
  Country: None (occurrence: None)
  Receive Date: 20090924
  Receipt Date: 20090918
  Transmission Date: 20100115
  Serious: Yes (Hospitalization)
  Sender: FDA-Public Use
  Company Number: KR-JNJFOC-20090402312

PATIENT
  Sex: Male
  Weight: 60 kg

DRUGS (4)
  1. DURAGESIC-100 [Suspect]
     Indication: PAIN MANAGEMENT
     Route: 062
     Dates: start: 20090401, end: 20090404
  2. ULTRACET [Suspect]
     Indication: PAIN MANAGEMENT
     Route: 048
     Dates: start: 20090401, end: 20090403
  3. TALUGEN (TALNIFLUMATE) [Concomitant]
     Indication: PAIN MANAGEMENT
     Route: 048
     Dates: start: 20090401, end: 20090403
  4. LYRICA [Concomitant]
     Indication: PAIN MANAGEMENT
     Route: 048

REACTIONS (4)
  - DIZZINESS [None]
  - NAUSEA [None]
  - ROAD TRAFFIC ACCIDENT [None]
  - SOMNOLENCE [None]
